FAERS Safety Report 20622588 (Version 2)
Quarter: 2022Q2

REPORT INFORMATION
  Report Type: Report from Study
  Country: US (occurrence: US)
  Receive Date: 20220322
  Receipt Date: 20220613
  Transmission Date: 20220720
  Serious: No
  Sender: FDA-Public Use
  Company Number: US-NOVARTISTESTPH-NVSC2022US063526

PATIENT

DRUGS (1)
  1. KESIMPTA [Suspect]
     Active Substance: OFATUMUMAB
     Indication: Product used for unknown indication
     Dosage: UNK, EVERY 4 WEEKS
     Route: 065
     Dates: start: 20220306

REACTIONS (1)
  - Incorrect dose administered [Unknown]
